FAERS Safety Report 21927266 (Version 1)
Quarter: 2023Q1

REPORT INFORMATION
  Report Type: Spontaneous
  Country: JP (occurrence: JP)
  Receive Date: 20230130
  Receipt Date: 20230130
  Transmission Date: 20230417
  Serious: Yes (Other)
  Sender: FDA-Public Use
  Company Number: JP-PFIZER INC-PV202200084035

PATIENT
  Age: 1 Year
  Sex: Male

DRUGS (7)
  1. SIROLIMUS [Suspect]
     Active Substance: SIROLIMUS
     Indication: Venolymphatic malformation
     Dosage: (0.1 MG,1 D)
     Route: 048
     Dates: start: 20220502
  2. SIROLIMUS [Suspect]
     Active Substance: SIROLIMUS
     Dosage: (0.2 MG,1 D)
     Route: 048
     Dates: start: 20220621
  3. SIROLIMUS [Suspect]
     Active Substance: SIROLIMUS
     Dosage: (0.4 MG,1 D)
     Route: 048
     Dates: start: 20220719
  4. SIROLIMUS [Suspect]
     Active Substance: SIROLIMUS
     Dosage: (0.8 MG,1 D)
     Route: 048
     Dates: start: 20220822
  5. SIROLIMUS [Suspect]
     Active Substance: SIROLIMUS
     Dosage: (1 MG,1 D)
     Route: 048
     Dates: start: 20221003
  6. SIROLIMUS [Suspect]
     Active Substance: SIROLIMUS
     Dosage: 1.2 MG,1 D
     Route: 048
     Dates: start: 20221031
  7. FERRIC PYROPHOSPHATE [Concomitant]
     Active Substance: FERRIC PYROPHOSPHATE
     Indication: Anaemia
     Dosage: 5 ML, 1X/DAY (5 ML,1 D)
     Route: 065

REACTIONS (2)
  - Pneumonia [Recovered/Resolved]
  - Hypogammaglobulinaemia [Not Recovered/Not Resolved]

NARRATIVE: CASE EVENT DATE: 20221003
